FAERS Safety Report 8511696-7 (Version None)
Quarter: 2012Q3

REPORT INFORMATION
  Report Type: 
  Country: None (occurrence: None)
  Receive Date: 20120716
  Receipt Date: 20120705
  Transmission Date: 20120928
  Serious: Yes (Hospitalization)
  Sender: FDA-Public Use
  Company Number: JP-009507513-1207JPN001570

PATIENT

DRUGS (8)
  1. REBETOL [Suspect]
     Indication: HEPATITIS C
     Dosage: 600 MG, UNK
     Route: 048
     Dates: start: 20120510, end: 20120520
  2. AMARYL [Concomitant]
     Indication: DIABETES MELLITUS
     Dosage: 1 DF, UNK
     Route: 048
  3. REBAMIPIDE [Concomitant]
     Indication: PROPHYLAXIS
     Dosage: 1 DF, UNK
  4. TELAPREVIR [Concomitant]
     Indication: HEPATITIS C
     Dosage: 1500 MG, UNK
     Route: 048
  5. REBETOL [Suspect]
     Dosage: 400 MG, UNK
     Route: 048
     Dates: start: 20120521, end: 20120530
  6. LOXOPROFEN [Concomitant]
     Indication: PROPHYLAXIS
     Dosage: 1 DF, QD
     Route: 048
  7. PEG-INTRON [Suspect]
     Indication: HEPATITIS C
     Dosage: 1.5 MICROGRAM PER KILOGRAM, QW
     Route: 058
     Dates: start: 20120510
  8. REBETOL [Suspect]
     Dosage: 200 MG, UNK
     Route: 048
     Dates: start: 20120531

REACTIONS (1)
  - RASH [None]
